FAERS Safety Report 13746628 (Version 2)
Quarter: 2017Q3

REPORT INFORMATION
  Report Type: Report from Study
  Country: US (occurrence: US)
  Receive Date: 20170712
  Receipt Date: 20170717
  Transmission Date: 20171127
  Serious: Yes (Other)
  Sender: FDA-Public Use
  Company Number: US-GILEAD-2017-0282188

PATIENT
  Age: 75 Year
  Sex: Male

DRUGS (1)
  1. RANOLAZINE. [Suspect]
     Active Substance: RANOLAZINE
     Indication: ANGINA PECTORIS
     Dosage: 1000 MG, UNK
     Route: 048
     Dates: start: 2011

REACTIONS (8)
  - B-cell lymphoma stage IV [Not Recovered/Not Resolved]
  - Lung adenocarcinoma [Not Recovered/Not Resolved]
  - Pneumonectomy [Not Recovered/Not Resolved]
  - Cardiac pacemaker insertion [Unknown]
  - Angina pectoris [Not Recovered/Not Resolved]
  - Drug ineffective [Unknown]
  - Cardiac disorder [Unknown]
  - Angina pectoris [Unknown]

NARRATIVE: CASE EVENT DATE: 201511
